FAERS Safety Report 24333091 (Version 1)
Quarter: 2024Q3

REPORT INFORMATION
  Report Type: Spontaneous
  Country: RU (occurrence: RU)
  Receive Date: 20240918
  Receipt Date: 20240918
  Transmission Date: 20241016
  Serious: Yes (Death, Hospitalization)
  Sender: PFIZER
  Company Number: RU-PFIZER INC-202400258333

PATIENT
  Sex: Female

DRUGS (1)
  1. CRIZOTINIB [Suspect]
     Active Substance: CRIZOTINIB
     Indication: Non-small cell lung cancer metastatic
     Dosage: 250 MG, 2X/DAY
     Dates: start: 202404

REACTIONS (1)
  - Death [Fatal]
